FAERS Safety Report 9292434 (Version 3)
Quarter: 2013Q2

REPORT INFORMATION
  Report Type: Spontaneous
  Country: US (occurrence: US)
  Receive Date: 20130516
  Receipt Date: 20130618
  Transmission Date: 20140414
  Serious: Yes (Other)
  Sender: FDA-Public Use
  Company Number: US-PFIZER INC-2013150145

PATIENT
  Age: 40 Year
  Sex: Female
  Weight: 94.33 kg

DRUGS (15)
  1. LYRICA [Suspect]
     Indication: PAIN
     Dosage: 75 MG, 2X/DAY
     Route: 048
     Dates: start: 20120306, end: 201304
  2. NEURONTIN [Suspect]
     Indication: LUMBAR RADICULOPATHY
     Dosage: 600 MG, 4X/DAY
     Route: 048
     Dates: start: 20121017, end: 201304
  3. ZOLPIDEM [Concomitant]
     Indication: SLEEP DISORDER
     Dosage: 10 MG, 1X/DAY
  4. VITAMIN B12 [Concomitant]
     Dosage: 1000 UG, 1X/DAY
  5. OXCARBAZEPINE [Concomitant]
     Dosage: 600 MG, 2X/DAY
  6. ATENOLOL [Concomitant]
     Indication: HYPERTENSION
     Dosage: 100 MG, 1X/DAY
  7. SOMA [Concomitant]
     Dosage: 350 MG, 2X/DAY
  8. SINGULAIR [Concomitant]
     Indication: HYPERSENSITIVITY
     Dosage: 10 MG, QHS
  9. TIZANIDINE [Concomitant]
     Dosage: 4 MG, 1X/DAY
  10. ALBUTEROL [Concomitant]
     Indication: DYSPNOEA
     Dosage: UNK, 3X/DAY
  11. PRILOSEC [Concomitant]
     Dosage: 40 MG, 1X/DAY
  12. TRILEPTAL [Concomitant]
     Dosage: 300 MG, QHS
  13. VIIBRYD [Concomitant]
     Dosage: 40 MG, 1X/DAY
  14. PROAIR HFA [Concomitant]
     Dosage: UNK
  15. MULTIVITAMINS [Concomitant]

REACTIONS (5)
  - Gout [Unknown]
  - Burning sensation [Unknown]
  - Pain in extremity [Not Recovered/Not Resolved]
  - Local swelling [Not Recovered/Not Resolved]
  - Erythema [Not Recovered/Not Resolved]
